FAERS Safety Report 14989220 (Version 1)
Quarter: 2018Q2

REPORT INFORMATION
  Report Type: Spontaneous
  Country: CH (occurrence: CH)
  Receive Date: 20180608
  Receipt Date: 20180608
  Transmission Date: 20180711
  Serious: Yes (Other)
  Sender: FDA-Public Use
  Company Number: CH-009507513-1805CHE002376

PATIENT
  Age: 20 Year
  Sex: Female
  Weight: 65 kg

DRUGS (2)
  1. CONCERTA [Concomitant]
     Active Substance: METHYLPHENIDATE HYDROCHLORIDE
     Indication: ATTENTION DEFICIT/HYPERACTIVITY DISORDER
     Dosage: 54 MG, QD
     Route: 048
  2. NUVARING [Suspect]
     Active Substance: ETHINYL ESTRADIOL\ETONOGESTREL
     Indication: CONTRACEPTION
     Dosage: 1 DF, UNK
     Route: 067
     Dates: start: 201706

REACTIONS (5)
  - Hypercholesterolaemia [Not Recovered/Not Resolved]
  - Hyperuricaemia [Unknown]
  - Lipase increased [Unknown]
  - High density lipoprotein increased [Unknown]
  - Necrotising ulcerative gingivostomatitis [Unknown]

NARRATIVE: CASE EVENT DATE: 20180420
